FAERS Safety Report 24462813 (Version 1)
Quarter: 2024Q4

REPORT INFORMATION
  Report Type: Report from Study
  Country: US (occurrence: US)
  Receive Date: 20241018
  Receipt Date: 20241018
  Transmission Date: 20250114
  Serious: Yes (Other)
  Sender: ACADIA PHARMACEUTICALS
  Company Number: US-ACADIA PHARMACEUTICALS INC.-ACA-2024-PIM-005980

PATIENT
  Age: 75 Year
  Sex: Male

DRUGS (13)
  1. NUPLAZID [Suspect]
     Active Substance: PIMAVANSERIN TARTRATE
     Indication: Parkinson^s disease
     Dosage: 34 MILLIGRAM
     Route: 048
     Dates: start: 20220122, end: 20240923
  2. CARBIDOPA\LEVODOPA [Concomitant]
     Active Substance: CARBIDOPA\LEVODOPA
  3. CYANOCOBALAMIN [Concomitant]
     Active Substance: CYANOCOBALAMIN
  4. DIVALPROEX SODIUM [Concomitant]
     Active Substance: DIVALPROEX SODIUM
     Dosage: 125 MILLIGRAM, SPRINKLES
  5. DONEPEZIL [Concomitant]
     Active Substance: DONEPEZIL
  6. ESCITALOPRAM [Concomitant]
     Active Substance: ESCITALOPRAM OXALATE
  7. FINASTERIDE [Concomitant]
     Active Substance: FINASTERIDE
  8. MELATONIN [Concomitant]
     Active Substance: MELATONIN
  9. MIDODRINE [Concomitant]
     Active Substance: MIDODRINE
  10. PANTOPRAZOLE [Concomitant]
     Active Substance: PANTOPRAZOLE
  11. QUETIAPINE [Concomitant]
     Active Substance: QUETIAPINE
  12. RIVAROXABAN [Concomitant]
     Active Substance: RIVAROXABAN
  13. TAMSULOSIN [Concomitant]
     Active Substance: TAMSULOSIN

REACTIONS (1)
  - Terminal state [Unknown]

NARRATIVE: CASE EVENT DATE: 20240923
